FAERS Safety Report 15958654 (Version 1)
Quarter: 2019Q1

REPORT INFORMATION
  Report Type: Spontaneous
  Country: US (occurrence: US)
  Receive Date: 20190213
  Receipt Date: 20190213
  Transmission Date: 20190417
  Serious: Yes (Other)
  Sender: FDA-Public Use
  Company Number: US-NAPPMUNDI-USA-2018-0144370

PATIENT
  Age: 33 Year
  Sex: Male

DRUGS (1)
  1. BUPRENORPHINE (SIMILAR TO NDA 21-306) [Suspect]
     Active Substance: BUPRENORPHINE
     Indication: PRODUCT USED FOR UNKNOWN INDICATION
     Route: 048

REACTIONS (8)
  - Anxiety [Recovered/Resolved]
  - Insomnia [Recovered/Resolved]
  - Sensory disturbance [Recovered/Resolved]
  - Fear [Recovered/Resolved]
  - Loss of consciousness [Recovered/Resolved]
  - Post-traumatic stress disorder [Recovered/Resolved]
  - Accidental exposure to product [Recovered/Resolved]
  - Visual impairment [Recovered/Resolved]

NARRATIVE: CASE EVENT DATE: 20160812
